FAERS Safety Report 21263237 (Version 1)
Quarter: 2022Q3

REPORT INFORMATION
  Report Type: Spontaneous
  Country: US (occurrence: US)
  Receive Date: 20220829
  Receipt Date: 20220829
  Transmission Date: 20221027
  Serious: Yes (Other)
  Sender: FDA-Public Use
  Company Number: US-GILEAD-2022-0595219

PATIENT

DRUGS (1)
  1. VIREAD [Suspect]
     Active Substance: TENOFOVIR DISOPROXIL FUMARATE
     Indication: Product used for unknown indication
     Dosage: UNK
     Route: 048
     Dates: start: 201006, end: 201901

REACTIONS (5)
  - Chronic kidney disease [Unknown]
  - Multiple fractures [Unknown]
  - Renal failure [Unknown]
  - Bone density decreased [Unknown]
  - Blood creatinine increased [Unknown]
